FAERS Safety Report 9635672 (Version 6)
Quarter: 2014Q1

REPORT INFORMATION
  Report Type: Spontaneous
  Country: US (occurrence: US)
  Receive Date: 20131021
  Receipt Date: 20140203
  Transmission Date: 20141002
  Serious: Yes (Other)
  Sender: FDA-Public Use
  Company Number: US-GLAXOSMITHKLINE-A1045737A

PATIENT
  Age: 52 Year
  Sex: Female

DRUGS (4)
  1. LOVAZA [Suspect]
     Indication: BLOOD TRIGLYCERIDES INCREASED
     Dosage: 2CAP TWICE PER DAY
     Route: 048
     Dates: start: 20131008, end: 20131015
  2. LAMOTRIGINE [Concomitant]
  3. KLONOPIN [Concomitant]
  4. DOXEPIN [Concomitant]

REACTIONS (18)
  - Poisoning [Recovering/Resolving]
  - Urticaria [Recovering/Resolving]
  - Pruritus [Recovering/Resolving]
  - Hyperhidrosis [Recovering/Resolving]
  - Dysgeusia [Recovering/Resolving]
  - Decreased appetite [Recovering/Resolving]
  - Headache [Recovered/Resolved]
  - Feeling abnormal [Recovering/Resolving]
  - Nausea [Recovering/Resolving]
  - Sinusitis [Recovering/Resolving]
  - Insomnia [Recovering/Resolving]
  - Anxiety [Recovering/Resolving]
  - Depression [Recovering/Resolving]
  - Erythema [Recovering/Resolving]
  - Abnormal sensation in eye [Recovering/Resolving]
  - Asthenia [Recovering/Resolving]
  - Wheezing [Recovering/Resolving]
  - Product quality issue [Unknown]
